FAERS Safety Report 18280135 (Version 3)
Quarter: 2021Q1

REPORT INFORMATION
  Report Type: Spontaneous
  Country: US (occurrence: US)
  Receive Date: 20200917
  Receipt Date: 20210128
  Transmission Date: 20210419
  Serious: Yes (Death)
  Sender: FDA-Public Use
  Company Number: US-PFIZER INC-2020355748

PATIENT
  Age: 73 Year
  Sex: Female

DRUGS (2)
  1. BRAFTOVI [Suspect]
     Active Substance: ENCORAFENIB
     Indication: PAPILLARY THYROID CANCER
     Dosage: 450 MG (450 MG (6X75MG)
  2. MEKTOVI [Suspect]
     Active Substance: BINIMETINIB
     Indication: PAPILLARY THYROID CANCER
     Dosage: 45 MG (45MG (3X15MG)

REACTIONS (2)
  - Off label use [Unknown]
  - Neoplasm progression [Fatal]
